FAERS Safety Report 16268132 (Version 1)
Quarter: 2019Q2

REPORT INFORMATION
  Report Type: Spontaneous
  Country: NL (occurrence: NL)
  Receive Date: 20190503
  Receipt Date: 20190503
  Transmission Date: 20190711
  Serious: Yes (Other)
  Sender: FDA-Public Use
  Company Number: NL-TEVA-2019-NL-1044120

PATIENT
  Age: 69 Year
  Sex: Male
  Weight: 80.5 kg

DRUGS (1)
  1. OMEPRAZOL MAAGSAPRESISTENTE CAPSULE, 20 MG (MILLIGRAM) [Suspect]
     Active Substance: OMEPRAZOLE SODIUM
     Indication: GASTROOESOPHAGEAL REFLUX DISEASE
     Dosage: 20 MILLIGRAM DAILY;
     Dates: start: 20000101

REACTIONS (3)
  - Respiratory tract infection [Unknown]
  - Oesophageal candidiasis [Recovered/Resolved]
  - Gastritis [Recovered/Resolved]

NARRATIVE: CASE EVENT DATE: 20180601
